FAERS Safety Report 17218649 (Version 1)
Quarter: 2019Q4

REPORT INFORMATION
  Report Type: Report from Study
  Country: CA (occurrence: CA)
  Receive Date: 20191231
  Receipt Date: 20191231
  Transmission Date: 20200122
  Serious: Yes (Other)
  Sender: FDA-Public Use
  Company Number: CA-TEVA-2019-CA-1159845

PATIENT
  Age: 47 Year
  Sex: Female

DRUGS (29)
  1. OMALIZUMAB. [Suspect]
     Active Substance: OMALIZUMAB
     Route: 058
  2. OMALIZUMAB. [Suspect]
     Active Substance: OMALIZUMAB
     Route: 058
  3. OMALIZUMAB. [Suspect]
     Active Substance: OMALIZUMAB
     Route: 058
  4. OMALIZUMAB. [Suspect]
     Active Substance: OMALIZUMAB
     Route: 058
  5. OMALIZUMAB. [Suspect]
     Active Substance: OMALIZUMAB
     Route: 058
  6. OMALIZUMAB. [Suspect]
     Active Substance: OMALIZUMAB
     Route: 058
  7. OMALIZUMAB. [Suspect]
     Active Substance: OMALIZUMAB
     Route: 058
  8. CICLOSPORIN [Suspect]
     Active Substance: CYCLOSPORINE
     Indication: PRODUCT USED FOR UNKNOWN INDICATION
     Route: 065
  9. CROMOLYN SODIUM. [Suspect]
     Active Substance: CROMOLYN SODIUM
     Route: 065
  10. OMALIZUMAB. [Suspect]
     Active Substance: OMALIZUMAB
     Route: 058
  11. CLINDAMYCIN. [Concomitant]
     Active Substance: CLINDAMYCIN
     Indication: PROPHYLAXIS
     Route: 065
  12. OMALIZUMAB. [Suspect]
     Active Substance: OMALIZUMAB
     Indication: CHRONIC SPONTANEOUS URTICARIA
     Route: 058
  13. OMALIZUMAB. [Suspect]
     Active Substance: OMALIZUMAB
     Route: 058
  14. OMALIZUMAB. [Suspect]
     Active Substance: OMALIZUMAB
     Route: 058
  15. OMALIZUMAB. [Suspect]
     Active Substance: OMALIZUMAB
     Route: 058
  16. KETOTIFEN [Concomitant]
     Active Substance: KETOTIFEN
     Indication: PRODUCT USED FOR UNKNOWN INDICATION
     Route: 065
  17. SINGULAIR [Concomitant]
     Active Substance: MONTELUKAST SODIUM
     Indication: PRODUCT USED FOR UNKNOWN INDICATION
     Dosage: 1 DOSAGE FORMS DAILY;
     Route: 065
  18. CROMOLYN SODIUM. [Suspect]
     Active Substance: CROMOLYN SODIUM
     Indication: URTICARIA
     Dosage: 1600 MILLIGRAM DAILY;
     Route: 065
  19. OMALIZUMAB. [Suspect]
     Active Substance: OMALIZUMAB
     Route: 058
  20. BILASTINE [Concomitant]
     Active Substance: BILASTINE
     Indication: PRODUCT USED FOR UNKNOWN INDICATION
     Route: 065
  21. PREDNISONE. [Concomitant]
     Active Substance: PREDNISONE
     Route: 048
  22. OMALIZUMAB. [Suspect]
     Active Substance: OMALIZUMAB
     Route: 058
  23. OMALIZUMAB. [Suspect]
     Active Substance: OMALIZUMAB
     Route: 058
  24. ZANTAC [Concomitant]
     Active Substance: RANITIDINE HYDROCHLORIDE
     Indication: PRODUCT USED FOR UNKNOWN INDICATION
     Route: 065
  25. OMALIZUMAB. [Suspect]
     Active Substance: OMALIZUMAB
     Route: 058
  26. OMALIZUMAB. [Suspect]
     Active Substance: OMALIZUMAB
     Route: 058
  27. OMALIZUMAB. [Suspect]
     Active Substance: OMALIZUMAB
     Route: 058
  28. PREDNISONE. [Concomitant]
     Active Substance: PREDNISONE
     Indication: PRODUCT USED FOR UNKNOWN INDICATION
     Route: 065
  29. OMALIZUMAB. [Suspect]
     Active Substance: OMALIZUMAB
     Route: 058

REACTIONS (18)
  - Food allergy [Unknown]
  - Sinus congestion [Unknown]
  - Drug intolerance [Unknown]
  - Goitre [Unknown]
  - Pharyngeal disorder [Unknown]
  - Flushing [Unknown]
  - Sinusitis [Unknown]
  - Muscle spasms [Unknown]
  - Hypersensitivity [Unknown]
  - Nonspecific reaction [Unknown]
  - Urticaria [Unknown]
  - Weight decreased [Unknown]
  - White coat hypertension [Unknown]
  - Diarrhoea [Unknown]
  - Perfume sensitivity [Unknown]
  - Aphonia [Unknown]
  - Rotator cuff syndrome [Unknown]
  - Therapeutic product effect decreased [Unknown]
